FAERS Safety Report 10301091 (Version 1)
Quarter: 2014Q3

REPORT INFORMATION
  Report Type: Spontaneous
  Country: FR (occurrence: FR)
  Receive Date: 20140714
  Receipt Date: 20140714
  Transmission Date: 20150326
  Serious: Yes (Hospitalization)
  Sender: FDA-Public Use
  Company Number: FR-TEVA-492795ISR

PATIENT
  Age: 87 Year
  Sex: Female

DRUGS (3)
  1. PREVISCAN [Concomitant]
     Active Substance: FLUINDIONE
     Dosage: 1 DOSAGE FORMS DAILY;
  2. LASILIX 20MG [Concomitant]
     Dosage: 1 DOSAGE FORMS DAILY;
  3. TERBINAFINE [Suspect]
     Active Substance: TERBINAFINE
     Route: 048
     Dates: start: 20140402, end: 201404

REACTIONS (3)
  - Cheilitis [Recovering/Resolving]
  - Rash pustular [Recovering/Resolving]
  - Vulvitis [Recovering/Resolving]

NARRATIVE: CASE EVENT DATE: 20140422
